FAERS Safety Report 17674002 (Version 1)
Quarter: 2020Q2

REPORT INFORMATION
  Report Type: Spontaneous
  Country: PL (occurrence: PL)
  Receive Date: 20200415
  Receipt Date: 20200415
  Transmission Date: 20200714
  Serious: Yes (Hospitalization, Other)
  Sender: FDA-Public Use
  Company Number: PL-BAXTER-2020BAX007751

PATIENT
  Age: 62 Year
  Sex: Male
  Weight: 96 kg

DRUGS (14)
  1. SPIRONOLACTONE. [Suspect]
     Active Substance: SPIRONOLACTONE
     Indication: OEDEMA PERIPHERAL
     Dosage: DAY 1-2, 3-5, 6-9
     Route: 048
  2. INSULIN [Concomitant]
     Active Substance: INSULIN NOS
     Indication: PRODUCT USED FOR UNKNOWN INDICATION
     Dosage: ON ADMISSION
     Route: 058
  3. SODIUM CHLORIDE. [Concomitant]
     Active Substance: SODIUM CHLORIDE
     Indication: MEDICATION DILUTION
     Dosage: 30ML OF 10% NACL IN 250 ML NORMAL SALINE
     Route: 041
  4. DEXAMETHASONE. [Concomitant]
     Active Substance: DEXAMETHASONE
     Indication: PRODUCT USED FOR UNKNOWN INDICATION
     Route: 042
  5. SPIRONOLACTONE. [Suspect]
     Active Substance: SPIRONOLACTONE
     Dosage: ON ADMISSION
     Route: 048
  6. PACLITAXEL. [Suspect]
     Active Substance: PACLITAXEL
     Indication: PANCREATIC CARCINOMA
     Dosage: PALLIATIVE CHEMOTHERAPY
     Route: 065
  7. ENOXAPARIN [Concomitant]
     Active Substance: ENOXAPARIN
     Indication: PRODUCT USED FOR UNKNOWN INDICATION
     Route: 058
  8. FUROSEMIDE NORAMEDA 10 MG/ML ROZTWOR DO WSTRZYKIWAN/ DO INFUZJI [Suspect]
     Active Substance: FUROSEMIDE
     Dosage: DAY 1-2
     Route: 041
  9. GEMCITABINE. [Suspect]
     Active Substance: GEMCITABINE
     Indication: PANCREATIC CARCINOMA
     Dosage: PALLIATIVE CHEMOTHERAPY
     Route: 065
  10. INSULIN [Concomitant]
     Active Substance: INSULIN NOS
     Dosage: 3-5 DAYS AFTER ADMISSION
     Route: 058
  11. INSULIN [Concomitant]
     Active Substance: INSULIN NOS
     Dosage: 1-2 DAYS AFTER ADMISSION
     Route: 058
  12. INSULIN [Concomitant]
     Active Substance: INSULIN NOS
     Dosage: 6-9 DAYS AFTER ADMISSION;10-11 (DISCHARGE)
     Route: 058
  13. FUROSEMIDE NORAMEDA 10 MG/ML ROZTWOR DO WSTRZYKIWAN/ DO INFUZJI [Suspect]
     Active Substance: FUROSEMIDE
     Indication: OEDEMA PERIPHERAL
     Dosage: DAY 3-5, 6-9
     Route: 041
  14. FUROSEMIDE. [Suspect]
     Active Substance: FUROSEMIDE
     Indication: OEDEMA PERIPHERAL
     Dosage: ON ADMISSION
     Route: 048

REACTIONS (2)
  - Generalised oedema [Recovered/Resolved]
  - Hypotension [Recovered/Resolved]
